FAERS Safety Report 25052558 (Version 1)
Quarter: 2025Q1

REPORT INFORMATION
  Report Type: Spontaneous
  Country: CN (occurrence: CN)
  Receive Date: 20250307
  Receipt Date: 20250307
  Transmission Date: 20250409
  Serious: Yes (Other)
  Sender: BIO-THERA SOLUTIONS, LTD.
  Company Number: CN-Bio-Thera Solutions, Ltd.-2172442

PATIENT
  Age: 68 Year
  Sex: Male

DRUGS (3)
  1. AVZIVI [Suspect]
     Active Substance: BEVACIZUMAB-TNJN
     Indication: Rectal cancer
     Dates: start: 20250219, end: 20250219
  2. OXALIPLATIN [Suspect]
     Active Substance: OXALIPLATIN
     Dates: start: 20250219, end: 20250219
  3. CAPECITABINE [Concomitant]
     Active Substance: CAPECITABINE
     Dates: start: 20250219, end: 20250219

REACTIONS (3)
  - Nausea [Recovering/Resolving]
  - Dysphagia [Recovering/Resolving]
  - Vomiting [Recovering/Resolving]

NARRATIVE: CASE EVENT DATE: 20250219
